APPROVED DRUG PRODUCT: ICOSAPENT ETHYL
Active Ingredient: ICOSAPENT ETHYL
Strength: 1GM
Dosage Form/Route: CAPSULE;ORAL
Application: A209457 | Product #001 | TE Code: AB
Applicant: HIKMA PHARMACEUTICALS USA INC
Approved: May 21, 2020 | RLD: No | RS: No | Type: RX